FAERS Safety Report 7130312-2 (Version None)
Quarter: 2010Q4

REPORT INFORMATION
  Report Type: 
  Country: None (occurrence: None)
  Receive Date: 20101201
  Receipt Date: 20101119
  Transmission Date: 20110411
  Serious: Yes (Death, Life-Threatening, Other)
  Sender: FDA-Public Use
  Company Number: JP-SHIRE-SPV1-2010-01589

PATIENT
  Age: 85 Year
  Sex: Female

DRUGS (17)
  1. FOSRENOL [Suspect]
     Indication: HYPERPHOSPHATAEMIA
     Dosage: UNK, TOTAL DAILY DOSE OF 1500 MG
     Route: 048
     Dates: start: 20100219, end: 20100831
  2. PYRINAZIN [Concomitant]
  3. PENTCILLIN [Concomitant]
  4. ZOVIRAX                            /00587301/ [Concomitant]
  5. ARTIST [Concomitant]
     Route: 048
  6. LANSOPRAZOLE [Concomitant]
  7. CONIEL [Concomitant]
     Route: 048
  8. ALEROFF [Concomitant]
     Route: 048
  9. POLARAMINE [Concomitant]
  10. MILLIS [Concomitant]
     Route: 062
  11. ALOSENN                            /00476901/ [Concomitant]
     Route: 048
  12. SENNOSIDE                          /00571901/ [Concomitant]
     Route: 048
  13. CLINORIL [Concomitant]
     Route: 048
  14. VITANEURIN                         /00056102/ [Concomitant]
  15. CYTOTEC [Concomitant]
     Route: 048
  16. RINDERON                           /00008501/ [Concomitant]
  17. XYLOCAINE [Concomitant]

REACTIONS (4)
  - DEATH [None]
  - LARGE INTESTINE PERFORATION [None]
  - PERITONITIS [None]
  - SEPSIS [None]
